FAERS Safety Report 16416742 (Version 2)
Quarter: 2019Q3

REPORT INFORMATION
  Report Type: Spontaneous
  Country: IT (occurrence: IT)
  Receive Date: 20190611
  Receipt Date: 20190724
  Transmission Date: 20191004
  Serious: Yes (Hospitalization)
  Sender: FDA-Public Use
  Company Number: IT-ASTRAZENECA-2019SE82543

PATIENT
  Age: 64 Year
  Sex: Female

DRUGS (14)
  1. UNSPECIFIED [Concomitant]
     Active Substance: UNSPECIFIED INGREDIENT
     Indication: GASTROOESOPHAGEAL REFLUX DISEASE
     Route: 048
  2. DIBASE [Concomitant]
     Active Substance: CHOLECALCIFEROL
     Indication: OSTEOPENIA
     Dosage: 35 DROPS
     Route: 048
     Dates: start: 2015
  3. FILGRASTIM [Concomitant]
     Active Substance: FILGRASTIM
     Indication: PROPHYLAXIS
     Dosage: 30 MU ONCE A WEEK
     Route: 065
     Dates: start: 201804
  4. SELEPARINA [Concomitant]
     Active Substance: NADROPARIN CALCIUM
     Indication: THROMBOSIS PROPHYLAXIS
     Dosage: 5700 IU DAILY
     Route: 058
     Dates: start: 20171005
  5. MOVICOL [Concomitant]
     Active Substance: POLYETHYLENE GLYCOL 3350\POTASSIUM CHLORIDE\SODIUM BICARBONATE\SODIUM CHLORIDE
     Indication: CONSTIPATION
     Dosage: INTERMITTENT
     Route: 048
     Dates: start: 20180906
  6. OMEPRAZEN [Suspect]
     Active Substance: OMEPRAZOLE
     Indication: PRODUCT USED FOR UNKNOWN INDICATION
     Route: 065
     Dates: start: 201501
  7. RITUXIMAB. [Suspect]
     Active Substance: RITUXIMAB
     Indication: B-CELL LYMPHOMA
     Dosage: 375.0MG EVERY CYCLE
     Route: 042
     Dates: start: 20171012, end: 20171012
  8. ENTECAVIR. [Suspect]
     Active Substance: ENTECAVIR
     Indication: HEPATITIS B VIRUS TEST POSITIVE
     Route: 065
     Dates: start: 201303
  9. SELEPARINA [Concomitant]
     Active Substance: NADROPARIN CALCIUM
     Indication: THROMBOSIS PROPHYLAXIS
     Dosage: 5700 IU DAILY
     Route: 058
     Dates: start: 20171005
  10. TAVOR [Concomitant]
     Indication: INSOMNIA
     Dosage: 9.0MG UNKNOWN
  11. ACICLOVIR [Concomitant]
     Active Substance: ACYCLOVIR
     Indication: CYTOMEGALOVIRUS CHORIORETINITIS
     Route: 048
  12. BACTRIM [Concomitant]
     Active Substance: SULFAMETHOXAZOLE\TRIMETHOPRIM
     Indication: ANTIFUNGAL PROPHYLAXIS
     Dosage: 960.0MG UNKNOWN
     Route: 048
     Dates: start: 20171005
  13. TAVOR [Concomitant]
     Indication: INSOMNIA
     Dosage: LORAZEPAM, 1 MG DAILY UNKNOWN
     Route: 048
     Dates: start: 20190124
  14. OMEPRAZOLE. [Concomitant]
     Active Substance: OMEPRAZOLE
     Indication: GASTROOESOPHAGEAL REFLUX DISEASE
     Dosage: 20.0MG UNKNOWN
     Route: 048

REACTIONS (1)
  - Viral uveitis [Not Recovered/Not Resolved]

NARRATIVE: CASE EVENT DATE: 20190318
